FAERS Safety Report 17705348 (Version 5)
Quarter: 2020Q2

REPORT INFORMATION
  Report Type: Report from Study
  Country: GB (occurrence: GB)
  Receive Date: 20200424
  Receipt Date: 20200618
  Transmission Date: 20200714
  Serious: Yes (Hospitalization)
  Sender: FDA-Public Use
  Company Number: GB-ROCHE-2585439

PATIENT
  Age: 61 Year
  Sex: Female
  Weight: 86 kg

DRUGS (7)
  1. PLACEBO [Suspect]
     Active Substance: UNSPECIFIED INGREDIENT
     Indication: TRIPLE NEGATIVE BREAST CANCER
     Dosage: ON 14/APR/2020, SHE RECEIVED THE MOST RECENT DOSE PRIOR TO AE/SAE ONSET.?ADMINISTERED TO PARTICIPANT
     Route: 048
     Dates: start: 20200226
  2. PACLITAXEL. [Suspect]
     Active Substance: PACLITAXEL
     Indication: TRIPLE NEGATIVE BREAST CANCER
     Dosage: ON 08/APR/2020, AT 14.10, SHE RECEIVED THE MOST RECENT DOSE OF 80 MG/M2 PRIOR TO AE/SAE ONSET.?PACLI
     Route: 042
     Dates: start: 20200226
  3. ATEZOLIZUMAB. [Suspect]
     Active Substance: ATEZOLIZUMAB
     Indication: TRIPLE NEGATIVE BREAST CANCER
     Dosage: ON 01/APR/2020, AT 15.10, SHE RECEIVED THE MOST RECENT DOSE OF ATEZOLIZUMAB PRIOR TO AE/SAE ONSET.?A
     Route: 041
     Dates: start: 20200226
  4. CETIRIZINE [Concomitant]
     Active Substance: CETIRIZINE HYDROCHLORIDE
     Route: 048
     Dates: start: 20200227
  5. AMOXICILLIN. [Concomitant]
     Active Substance: AMOXICILLIN
     Indication: LOWER RESPIRATORY TRACT INFECTION
     Route: 048
     Dates: start: 20200317, end: 20200327
  6. PIRITON [Concomitant]
     Active Substance: CHLORPHENIRAMINE MALEATE
     Indication: RASH
     Route: 048
     Dates: start: 20200228
  7. PREDNISOLONE. [Concomitant]
     Active Substance: PREDNISOLONE
     Route: 048
     Dates: start: 20200227

REACTIONS (1)
  - Pulmonary embolism [Recovering/Resolving]

NARRATIVE: CASE EVENT DATE: 20200415
